FAERS Safety Report 6504149-9 (Version None)
Quarter: 2009Q4

REPORT INFORMATION
  Report Type: 
  Country: None (occurrence: None)
  Receive Date: 20091215
  Receipt Date: 20091130
  Transmission Date: 20100525
  Serious: Yes (Other)
  Sender: FDA-Public Use
  Company Number: 2009001516

PATIENT
  Age: 92 Year
  Sex: Female

DRUGS (2)
  1. TARCEVA [Suspect]
     Indication: LUNG SQUAMOUS CELL CARCINOMA STAGE UNSPECIFIED
     Dosage: (150 MG,QD), ORAL
     Route: 048
     Dates: start: 20090325, end: 20091202
  2. DIURETIC NOS [Concomitant]

REACTIONS (16)
  - ALOPECIA [None]
  - DECREASED APPETITE [None]
  - DIARRHOEA [None]
  - DRUG INEFFECTIVE [None]
  - FATIGUE [None]
  - HAEMOPTYSIS [None]
  - HEART RATE INCREASED [None]
  - LUNG INFECTION [None]
  - MICTURITION FREQUENCY DECREASED [None]
  - MOUTH ULCERATION [None]
  - NEOPLASM PROGRESSION [None]
  - SKIN EXFOLIATION [None]
  - SKIN FISSURES [None]
  - SKIN ULCER [None]
  - SOMNOLENCE [None]
  - WEIGHT DECREASED [None]
